FAERS Safety Report 5380906-X (Version None)
Quarter: 2007Q3

REPORT INFORMATION
  Report Type: 
  Country: None (occurrence: None)
  Receive Date: 20070702
  Receipt Date: 20060802
  Transmission Date: 20080115
  Serious: Yes (Hospitalization)
  Sender: FDA-Public Use
  Company Number: SPV1-2006-00410

PATIENT
  Age: 18 Year
  Sex: Female

DRUGS (4)
  1. PENTASA [Suspect]
     Indication: BEHCET'S SYNDROME
     Dosage: ORAL
     Route: 048
     Dates: start: 20051217, end: 20060725
  2. ALFACALCIDOL          (AFACALCIDOL) [Concomitant]
  3. TEPRENONE                (TEPRENONE) [Concomitant]
  4. PREDNISOLONE [Concomitant]

REACTIONS (1)
  - APLASTIC ANAEMIA [None]
